FAERS Safety Report 9881183 (Version 1)
Quarter: 2014Q1

REPORT INFORMATION
  Report Type: Spontaneous
  Country: US (occurrence: US)
  Receive Date: 20140207
  Receipt Date: 20140207
  Transmission Date: 20141002
  Serious: No
  Sender: FDA-Public Use
  Company Number: US-009507513-1402USA002765

PATIENT
  Age: 4 Year
  Sex: Male
  Weight: 22.68 kg

DRUGS (1)
  1. CLARITIN CHEWABLE TABLETS [Suspect]
     Indication: NASOPHARYNGITIS
     Dosage: UNK, PRN
     Route: 048

REACTIONS (3)
  - Overdose [Unknown]
  - Accidental exposure to product by child [Unknown]
  - Off label use [Unknown]
